FAERS Safety Report 24315626 (Version 3)
Quarter: 2024Q4

REPORT INFORMATION
  Report Type: Spontaneous
  Country: CA (occurrence: CA)
  Receive Date: 20240913
  Receipt Date: 20241128
  Transmission Date: 20250114
  Serious: Yes (Hospitalization, Other)
  Sender: ACCORD
  Company Number: None

PATIENT
  Age: 87 Year
  Sex: Male

DRUGS (4)
  1. LEVETIRACETAM [Suspect]
     Active Substance: LEVETIRACETAM
     Indication: Partial seizures
     Dosage: 1 EVERY 1 DAYS
     Route: 065
  2. CLOBAZAM [Suspect]
     Active Substance: CLOBAZAM
     Indication: Partial seizures
     Dosage: 1 EVERY 1 DAYS
     Route: 065
  3. VALPROIC ACID [Suspect]
     Active Substance: VALPROIC ACID
     Indication: Partial seizures
     Dosage: SYRUP, 1 EVERY 24 HOURS
     Route: 065
  4. LEVETIRACETAM [Suspect]
     Active Substance: LEVETIRACETAM
     Indication: Partial seizures
     Dosage: 2 EVERY 1 DAYS
     Route: 065

REACTIONS (5)
  - Delirium [Recovering/Resolving]
  - Fall [Recovering/Resolving]
  - Multiple-drug resistance [Recovering/Resolving]
  - Gait disturbance [Recovering/Resolving]
  - Moaning [Recovering/Resolving]
